FAERS Safety Report 6554210-8 (Version None)
Quarter: 2010Q1

REPORT INFORMATION
  Report Type: 
  Country: None (occurrence: None)
  Receive Date: 20100122
  Receipt Date: 20100106
  Transmission Date: 20100710
  Serious: Yes (Hospitalization, Other)
  Sender: FDA-Public Use
  Company Number: 2010AC000036

PATIENT
  Age: 54 Year
  Sex: Female

DRUGS (24)
  1. DIGOXIN [Suspect]
     Dosage: 0.125 MG;QD;PO
     Route: 048
     Dates: start: 20040101
  2. LISINOPRIL [Suspect]
  3. FUROSEMIDE [Concomitant]
  4. CARVEDILOL [Concomitant]
  5. WARFARIN SODIUM [Concomitant]
  6. ZOCOR [Concomitant]
  7. PROTONIX [Concomitant]
  8. ASPIRIN [Concomitant]
  9. NITROGLYCERIN [Concomitant]
  10. ALBUTEROL [Concomitant]
  11. LIPITOR [Concomitant]
  12. VIOXX [Concomitant]
  13. ENALAPRIL MALEATE [Concomitant]
  14. PREVACID [Concomitant]
  15. ATORVASTATIN [Concomitant]
  16. NORVASC [Concomitant]
  17. METAMUCIL [Concomitant]
  18. SENOKOT [Concomitant]
  19. PERCOCET [Concomitant]
  20. HEPARIN [Concomitant]
  21. LOVENOX [Concomitant]
  22. WARFARIN SODIUM [Concomitant]
  23. ENALAPRIL MALEATE [Concomitant]
  24. ATROVENT [Concomitant]

REACTIONS (11)
  - ABDOMINAL TENDERNESS [None]
  - ANTICONVULSANT DRUG LEVEL BELOW THERAPEUTIC [None]
  - CEREBRAL INFARCTION [None]
  - CORONARY ARTERY THROMBOSIS [None]
  - DROP ATTACKS [None]
  - EMBOLISM [None]
  - FALL [None]
  - HAEMATOMA [None]
  - MUSCULAR WEAKNESS [None]
  - MYOCARDIAL INFARCTION [None]
  - PAIN [None]
